FAERS Safety Report 5455170-3 (Version None)
Quarter: 2007Q3

REPORT INFORMATION
  Report Type: 
  Country: None (occurrence: None)
  Receive Date: 20070914
  Receipt Date: 20070912
  Transmission Date: 20080115
  Serious: Yes (Life-Threatening)
  Sender: FDA-Public Use
  Company Number: 2007S1000070

PATIENT
  Age: 9 Day
  Sex: Female
  Weight: 0.88 kg

DRUGS (11)
  1. NITRIC OXIDE [Suspect]
     Indication: LUNG DISORDER
     Dosage: 5 PPM; CONT; INH
     Route: 055
     Dates: start: 20070327, end: 20070417
  2. NITRIC OXIDE [Suspect]
     Indication: PROPHYLAXIS
     Dosage: 5 PPM; CONT; INH
     Route: 055
     Dates: start: 20070327, end: 20070417
  3. IBUPROFEN [Concomitant]
  4. DOPAMINE HCL [Concomitant]
  5. HEPATITIS B IMMUNE GLOBULIN (HUMAN) [Concomitant]
  6. IBUPROFEN [Concomitant]
  7. VANCOMYCIN [Concomitant]
  8. CEFTAZIDIME [Concomitant]
  9. CAFFEINE [Concomitant]
  10. DEXAMETASON [Concomitant]
  11. COMBIVENT /GFR/ [Concomitant]

REACTIONS (1)
  - INTRAVENTRICULAR HAEMORRHAGE NEONATAL [None]
